FAERS Safety Report 25361511 (Version 1)
Quarter: 2025Q2

REPORT INFORMATION
  Report Type: Spontaneous
  Country: IL (occurrence: IL)
  Receive Date: 20250527
  Receipt Date: 20250527
  Transmission Date: 20250717
  Serious: Yes (Other)
  Sender: AMGEN
  Company Number: IL-AMGEN-ISRSP2025100654

PATIENT

DRUGS (5)
  1. TEPROTUMUMAB [Suspect]
     Active Substance: TEPROTUMUMAB
     Indication: Endocrine ophthalmopathy
     Route: 040
  2. TEPROTUMUMAB [Suspect]
     Active Substance: TEPROTUMUMAB
     Dosage: 20 MILLIGRAM/KILOGRAM, Q3WK
     Route: 040
  3. MYCOPHENOLATE MOFETIL [Concomitant]
     Active Substance: MYCOPHENOLATE MOFETIL
  4. TOCILIZUMAB [Concomitant]
     Active Substance: TOCILIZUMAB
  5. METHOTREXATE [Concomitant]
     Active Substance: METHOTREXATE

REACTIONS (17)
  - Encephalopathy [Unknown]
  - Deafness [Unknown]
  - Endocrine ophthalmopathy [Unknown]
  - Myalgia [Unknown]
  - Hyperglycaemia [Unknown]
  - Gingival recession [Unknown]
  - Diarrhoea [Unknown]
  - Tinnitus [Unknown]
  - Headache [Unknown]
  - Weight decreased [Unknown]
  - Cough [Unknown]
  - Malaise [Unknown]
  - Aphthous ulcer [Unknown]
  - Menstrual disorder [Recovered/Resolved]
  - Onychoclasis [Unknown]
  - Vitiligo [Unknown]
  - Nail bed disorder [Unknown]
